FAERS Safety Report 9402517 (Version 1)
Quarter: 2013Q3

REPORT INFORMATION
  Report Type: Spontaneous
  Country: FR (occurrence: FR)
  Receive Date: 20130716
  Receipt Date: 20130716
  Transmission Date: 20140515
  Serious: Yes (Death)
  Sender: FDA-Public Use
  Company Number: FR-SANOFI-AVENTIS-2013SA070473

PATIENT
  Age: 88 Year
  Sex: Female

DRUGS (10)
  1. TRIATEC [Suspect]
     Indication: HYPERTENSION
     Route: 048
     Dates: start: 201305, end: 20130603
  2. PLAVIX [Suspect]
     Indication: ACUTE CORONARY SYNDROME
     Route: 048
     Dates: start: 20130523, end: 20130605
  3. AUGMENTIN [Suspect]
     Indication: SEPSIS
     Route: 048
     Dates: start: 20130523, end: 20130604
  4. KARDEGIC [Concomitant]
     Dosage: STRENGTH: 75 MG
     Route: 048
  5. LEVOTHYROX [Concomitant]
     Indication: HYPOTHYROIDISM
     Route: 048
  6. EUPANTOL [Concomitant]
     Route: 048
  7. CARDENSIEL [Concomitant]
     Dosage: STRENGTH: 2.5 MG
     Route: 048
  8. EXELON [Concomitant]
     Dosage: STRENGTH: 4.6 MG/24 H
  9. SPASFON [Concomitant]
  10. DUPHALAC /NET/ [Concomitant]
     Route: 048

REACTIONS (10)
  - Renal failure acute [Fatal]
  - Creatinine renal clearance increased [Fatal]
  - Blood creatinine increased [Fatal]
  - Azotaemia [Fatal]
  - Hepatitis [Fatal]
  - Aspartate aminotransferase increased [Fatal]
  - Alanine aminotransferase increased [Fatal]
  - Gamma-glutamyltransferase increased [Fatal]
  - Blood alkaline phosphatase increased [Fatal]
  - Cell death [Fatal]
